FAERS Safety Report 4554008-6 (Version None)
Quarter: 2005Q1

REPORT INFORMATION
  Report Type: 
  Country: None (occurrence: None)
  Receive Date: 20050118
  Receipt Date: 20040901
  Transmission Date: 20050727
  Serious: Yes (Hospitalization)
  Sender: FDA-Public Use
  Company Number: PHBS2004NZ11506

PATIENT
  Age: 40 Year
  Sex: Male

DRUGS (6)
  1. CLOZARIL [Suspect]
     Indication: SCHIZOPHRENIA
     Dosage: 200 MG, QHS
     Route: 048
     Dates: start: 20010909
  2. INSULIN [Concomitant]
     Indication: DIABETES MELLITUS INSULIN-DEPENDENT
     Route: 065
  3. INSULIN [Concomitant]
     Route: 065
  4. SIMVASTATIN [Concomitant]
     Dosage: 10  MG/D
     Route: 065
  5. RANITIDINE [Concomitant]
     Dosage: 150 MG, QD
     Route: 065
  6. ANTIASTHMATICS,INHALANTS [Concomitant]

REACTIONS (6)
  - CHILLBLAINS [None]
  - ECZEMA [None]
  - ERYTHEMA [None]
  - OEDEMA PERIPHERAL [None]
  - RASH [None]
  - SKIN ULCER [None]
